FAERS Safety Report 18544932 (Version 1)
Quarter: 2020Q4

REPORT INFORMATION
  Report Type: Spontaneous
  Country: US (occurrence: US)
  Receive Date: 20201125
  Receipt Date: 20201125
  Transmission Date: 20210114
  Serious: Yes (Disabling)
  Sender: FDA-Public Use
  Company Number: US-JNJFOC-20201135537

PATIENT
  Sex: Female
  Weight: 44.45 kg

DRUGS (2)
  1. LEVAQUIN [Suspect]
     Active Substance: LEVOFLOXACIN
     Indication: NASOPHARYNGITIS
     Route: 065
  2. LYRICA [Suspect]
     Active Substance: PREGABALIN
     Indication: FIBROMYALGIA
     Route: 048
     Dates: start: 2019

REACTIONS (9)
  - Intervertebral disc protrusion [Unknown]
  - Hypoaesthesia [Unknown]
  - Eye injury [Unknown]
  - Paraesthesia [Unknown]
  - Disability [Unknown]
  - Burning sensation [Unknown]
  - Exostosis [Unknown]
  - Nerve injury [Unknown]
  - Fall [Unknown]
